FAERS Safety Report 4748176-0 (Version None)
Quarter: 2005Q3

REPORT INFORMATION
  Report Type: 
  Country: None (occurrence: None)
  Receive Date: 20050818
  Receipt Date: 20050610
  Transmission Date: 20060218
  Serious: Yes (Hospitalization)
  Sender: FDA-Public Use
  Company Number: US-ROCHE-407551

PATIENT
  Age: 64 Year
  Sex: Male
  Weight: 75.9 kg

DRUGS (4)
  1. PEGASYS [Suspect]
     Indication: HEPATITIS C
     Route: 058
     Dates: start: 20050510, end: 20050525
  2. COPEGUS [Suspect]
     Indication: HEPATITIS C
     Route: 048
     Dates: start: 20050510, end: 20050525
  3. SYNTHROID [Concomitant]
     Route: 048
     Dates: start: 20030615
  4. ACIPHEX [Concomitant]
     Route: 048
     Dates: start: 20050315

REACTIONS (6)
  - BILE DUCT OBSTRUCTION [None]
  - INFLUENZA LIKE ILLNESS [None]
  - PANCREATITIS [None]
  - PLATELET COUNT DECREASED [None]
  - RED BLOOD CELL COUNT DECREASED [None]
  - WHITE BLOOD CELL COUNT DECREASED [None]
